FAERS Safety Report 19492909 (Version 2)
Quarter: 2021Q4

REPORT INFORMATION
  Report Type: Spontaneous
  Country: PK (occurrence: PK)
  Receive Date: 20210705
  Receipt Date: 20211121
  Transmission Date: 20220303
  Serious: Yes (Other)
  Sender: FDA-Public Use
  Company Number: PK-PFIZER INC-2020394674

PATIENT
  Age: 50 Year

DRUGS (6)
  1. ENBREL [Suspect]
     Active Substance: ETANERCEPT
     Indication: Psoriatic arthropathy
     Dosage: 50 MG, WEEKLY
     Route: 058
     Dates: start: 202010, end: 202109
  2. STARCOX [Concomitant]
     Dosage: 90 MG 1 TAB ONCE DAILY FOR 2 MONTHS AFTER BREAKFAST
  3. REJUVA [Concomitant]
     Dosage: 1SACHET ONCE DAILY AFTER BREAKFAST FOR 2 MONTHS
  4. TRAMADOL [Concomitant]
     Active Substance: TRAMADOL
     Dosage: 50 MG 1 CAPSULE ONCE DAILY FOR 1 MONTH AFTER DINNER
  5. FEROSOFT FA [Concomitant]
     Dosage: 1 TABLET ONCE DAILY AFTER MEALS FOR 2 MONTHS
  6. METHYLCOBALAMIN [Concomitant]
     Active Substance: METHYLCOBALAMIN
     Dosage: 500 MG 1 TABLET ONCE DAILY AFTER MEALS FOR 2 MONTHS

REACTIONS (4)
  - Tachycardia [Unknown]
  - Joint swelling [Unknown]
  - Hypertension [Unknown]
  - Arthralgia [Unknown]
